FAERS Safety Report 12797477 (Version 1)
Quarter: 2016Q3

REPORT INFORMATION
  Report Type: Spontaneous
  Country: US (occurrence: US)
  Receive Date: 20160930
  Receipt Date: 20160930
  Transmission Date: 20161109
  Serious: No
  Sender: FDA-Public Use
  Company Number: US-ASTRAZENECA-2016SF03913

PATIENT
  Age: 80 Year
  Sex: Male

DRUGS (1)
  1. PRILOSEC OTC [Suspect]
     Active Substance: OMEPRAZOLE MAGNESIUM
     Indication: SALIVARY HYPERSECRETION
     Route: 048

REACTIONS (2)
  - Cardiac flutter [Recovered/Resolved]
  - Blood pressure increased [Recovered/Resolved]
